FAERS Safety Report 6908941-8 (Version None)
Quarter: 2010Q3

REPORT INFORMATION
  Report Type: 
  Country: None (occurrence: None)
  Receive Date: 20100805
  Receipt Date: 20100726
  Transmission Date: 20110219
  Serious: Yes (Congenital Anomaly)
  Sender: FDA-Public Use
  Company Number: GXKR2010GB08373

PATIENT

DRUGS (1)
  1. METHADONE (NGX) [Suspect]
     Route: 064

REACTIONS (8)
  - ASTIGMATISM [None]
  - CONGENITAL VISUAL ACUITY REDUCED [None]
  - DEVELOPMENTAL DELAY [None]
  - DRUG EXPOSURE DURING PREGNANCY [None]
  - HYPERMETROPIA [None]
  - NYSTAGMUS [None]
  - STRABISMUS [None]
  - VISUAL IMPAIRMENT [None]
